FAERS Safety Report 22522745 (Version 2)
Quarter: 2023Q2

REPORT INFORMATION
  Report Type: Spontaneous
  Country: CA (occurrence: CA)
  Receive Date: 20230605
  Receipt Date: 20230621
  Transmission Date: 20230721
  Serious: Yes (Other)
  Sender: FDA-Public Use
  Company Number: CA-BAYER-2023A076603

PATIENT
  Age: 79 Year
  Sex: Male

DRUGS (3)
  1. RIVAROXABAN [Suspect]
     Active Substance: RIVAROXABAN
     Indication: Arrhythmia
     Route: 048
  2. RIVAROXABAN [Suspect]
     Active Substance: RIVAROXABAN
     Indication: Thrombosis prophylaxis
     Route: 048
  3. WARFARIN [Concomitant]
     Active Substance: WARFARIN

REACTIONS (16)
  - Haemorrhage [Unknown]
  - Cardiac operation [Unknown]
  - Haematochezia [Unknown]
  - Surgery [Unknown]
  - Rash macular [Unknown]
  - Taste disorder [Unknown]
  - Epistaxis [Unknown]
  - Product dose omission issue [Unknown]
  - Contusion [Unknown]
  - Renal cancer [Unknown]
  - Chromaturia [Unknown]
  - Lymphadenopathy [Unknown]
  - Lung neoplasm [Unknown]
  - Gingivitis [Unknown]
  - Dyspnoea [Unknown]
  - Asthenia [Unknown]
